FAERS Safety Report 6263092-3 (Version None)
Quarter: 2009Q3

REPORT INFORMATION
  Report Type: 
  Country: None (occurrence: None)
  Receive Date: 20090710
  Receipt Date: 20070801
  Transmission Date: 20100115
  Serious: Yes (Other)
  Sender: FDA-Public Use
  Company Number: US-ASTRAZENECA-2006UW23907

PATIENT
  Age: 15858 Day
  Sex: Male
  Weight: 77.1 kg

DRUGS (13)
  1. SEROQUEL [Suspect]
     Dosage: 100 - 300 MG
     Route: 048
     Dates: start: 20001023, end: 20010807
  2. RISPERDAL [Concomitant]
     Dates: start: 20000101
  3. ZYPREXA [Concomitant]
     Dates: start: 20000101
  4. MARIJUANA [Concomitant]
  5. ZOLOFT [Concomitant]
     Route: 048
  6. AMBIEN [Concomitant]
  7. KLONOPIN [Concomitant]
     Route: 048
  8. HUMULIN R [Concomitant]
  9. ZANTAC [Concomitant]
  10. GLUCOPHAGE [Concomitant]
  11. GLUCOTROL XL [Concomitant]
  12. SINEQUAN [Concomitant]
     Dosage: 50 MG AT NIGHT AND AS REQUIRED
     Route: 048
  13. TRAZODONE HCL [Concomitant]

REACTIONS (4)
  - DIABETIC FOOT [None]
  - PANCREATITIS [None]
  - TYPE 2 DIABETES MELLITUS [None]
  - WEIGHT INCREASED [None]
